FAERS Safety Report 12933216 (Version 1)
Quarter: 2016Q4

REPORT INFORMATION
  Report Type: Spontaneous
  Country: CN (occurrence: CN)
  Receive Date: 20161111
  Receipt Date: 20161111
  Transmission Date: 20170207
  Serious: Yes (Other)
  Sender: FDA-Public Use
  Company Number: CN-BAYER-2016-211823

PATIENT
  Sex: Male
  Weight: 75 kg

DRUGS (1)
  1. KOGENATE FS [Suspect]
     Active Substance: ANTIHEMOPHILIC FACTOR, HUMAN RECOMBINANT
     Dosage: THE PATIENT WAS USUALLY GIVEN 1000-2000 IU

REACTIONS (3)
  - Haemarthrosis [None]
  - General physical health deterioration [None]
  - Product quality issue [None]
